FAERS Safety Report 11422926 (Version 1)
Quarter: 2015Q3

REPORT INFORMATION
  Report Type: Spontaneous
  Country: MU (occurrence: US)
  Receive Date: 20150827
  Receipt Date: 20150827
  Transmission Date: 20151125
  Serious: Yes (Death, Hospitalization)
  Sender: FDA-Public Use
  Company Number: MU-MYLANLABS-2015M1027586

PATIENT

DRUGS (12)
  1. LANTUS [Concomitant]
     Active Substance: INSULIN GLARGINE
  2. OMEPRAZOLE. [Concomitant]
     Active Substance: OMEPRAZOLE
  3. AMLODIPINE [Concomitant]
     Active Substance: AMLODIPINE BESYLATE
  4. METOPROLOL [Concomitant]
     Active Substance: METOPROLOL
  5. NOVOLOG [Concomitant]
     Active Substance: INSULIN ASPART
  6. TRAZODONE [Concomitant]
     Active Substance: TRAZODONE HYDROCHLORIDE
  7. FONDAPARINUX [Suspect]
     Active Substance: FONDAPARINUX
     Indication: THROMBOSIS PROPHYLAXIS
     Dosage: 7.5 MG/0.6ML, QD
     Route: 058
     Dates: start: 20140108, end: 20140416
  8. HCTZ [Concomitant]
     Active Substance: HYDROCHLOROTHIAZIDE
  9. CHLOROCHIN [Concomitant]
  10. FONDAPARINUX [Suspect]
     Active Substance: FONDAPARINUX
     Dosage: 5 MG QD
     Dates: start: 20140416
  11. HUMULIN R [Concomitant]
     Active Substance: INSULIN HUMAN
  12. CITALOPRAM [Concomitant]
     Active Substance: CITALOPRAM HYDROBROMIDE

REACTIONS (5)
  - Epistaxis [Unknown]
  - Haemorrhage [Fatal]
  - Mouth haemorrhage [Unknown]
  - Vascular rupture [Unknown]
  - Blood urine present [Unknown]

NARRATIVE: CASE EVENT DATE: 20140416
